FAERS Safety Report 13923767 (Version 1)
Quarter: 2017Q3

REPORT INFORMATION
  Report Type: Spontaneous
  Country: US (occurrence: US)
  Receive Date: 20170831
  Receipt Date: 20170831
  Transmission Date: 20171127
  Serious: No
  Sender: FDA-Public Use
  Company Number: US-PFIZER INC-2017370957

PATIENT
  Age: 67 Year
  Sex: Female

DRUGS (4)
  1. ENBREL [Concomitant]
     Active Substance: ETANERCEPT
     Indication: LUPUS-LIKE SYNDROME
  2. ENBREL [Concomitant]
     Active Substance: ETANERCEPT
     Indication: ARTHRITIS
  3. ADVIL [Suspect]
     Active Substance: IBUPROFEN
     Dosage: UNK
  4. ENBREL [Concomitant]
     Active Substance: ETANERCEPT
     Indication: SJOGREN^S SYNDROME
     Dosage: UNK UNK, QWK
     Dates: start: 201703

REACTIONS (1)
  - Drug ineffective [Unknown]

NARRATIVE: CASE EVENT DATE: 2017
